FAERS Safety Report 8326691-0 (Version None)
Quarter: 2012Q2

REPORT INFORMATION
  Report Type: 
  Country: None (occurrence: None)
  Receive Date: 20120501
  Receipt Date: 20120423
  Transmission Date: 20120825
  Serious: Yes (Hospitalization, Other)
  Sender: FDA-Public Use
  Company Number: GB-JNJFOC-20120207586

PATIENT
  Age: 47 Year
  Sex: Female

DRUGS (12)
  1. CLOZARIL [Suspect]
     Route: 048
     Dates: start: 20100401, end: 20100426
  2. OLANZAPINE [Concomitant]
     Route: 065
     Dates: start: 20111101
  3. ACETAMINOPHEN [Suspect]
     Indication: PRODUCT USED FOR UNKNOWN INDICATION
     Route: 048
  4. ACETAMINOPHEN [Suspect]
     Route: 048
  5. CLOZARIL [Suspect]
     Route: 048
     Dates: start: 20111201
  6. CLOZARIL [Suspect]
     Indication: SCHIZOPHRENIA
     Route: 048
     Dates: start: 20020212
  7. FLUPENTIXOL [Concomitant]
     Route: 065
     Dates: start: 20100501
  8. PIPORTIL SPECIA [Concomitant]
     Route: 065
     Dates: start: 20110201, end: 20110701
  9. QUETIAPINE [Concomitant]
     Route: 048
     Dates: start: 20110701
  10. AMISULPRIDE [Concomitant]
     Route: 065
     Dates: start: 20100801
  11. ARIPIPRAZOLE [Concomitant]
     Route: 065
     Dates: start: 20101001
  12. FLUPENTIXOL [Concomitant]
     Route: 065
     Dates: start: 20101101

REACTIONS (6)
  - CARDIAC DISORDER [None]
  - ELECTROCARDIOGRAM QT SHORTENED [None]
  - HYPERTENSION [None]
  - DRUG INEFFECTIVE [None]
  - INTENTIONAL OVERDOSE [None]
  - MOOD ALTERED [None]
